FAERS Safety Report 5107973-2 (Version None)
Quarter: 2006Q3

REPORT INFORMATION
  Report Type: 
  Country: None (occurrence: None)
  Receive Date: 20060914
  Receipt Date: 20060904
  Transmission Date: 20061208
  Serious: Yes (Disabling)
  Sender: FDA-Public Use
  Company Number: 2006106966

PATIENT
  Age: 77 Year
  Sex: Female

DRUGS (1)
  1. AMLODIPINE [Suspect]
     Indication: ANGINA PECTORIS
     Dates: start: 20020101

REACTIONS (2)
  - RESTLESS LEGS SYNDROME [None]
  - SLEEP DISORDER [None]
